FAERS Safety Report 4393968-3 (Version None)
Quarter: 2004Q3

REPORT INFORMATION
  Report Type: 
  Country: None (occurrence: None)
  Receive Date: 20040701
  Receipt Date: 20040618
  Transmission Date: 20050211
  Serious: Yes (Other)
  Sender: FDA-Public Use
  Company Number: 2004UW12832

PATIENT
  Sex: 0

DRUGS (1)
  1. SEROQUEL [Suspect]

REACTIONS (1)
  - PLATELET COUNT DECREASED [None]
